FAERS Safety Report 6130381-2 (Version None)
Quarter: 2009Q1

REPORT INFORMATION
  Report Type: 
  Country: None (occurrence: None)
  Receive Date: 20090324
  Receipt Date: 20090320
  Transmission Date: 20090719
  Serious: Yes (Hospitalization)
  Sender: FDA-Public Use
  Company Number: US-B.I. PHARMACEUTICALS,INC./RIDGEFIELD-2009-BP-02603BP

PATIENT
  Age: 71 Year
  Sex: Female

DRUGS (8)
  1. COMBIVENT [Suspect]
     Indication: CHRONIC OBSTRUCTIVE PULMONARY DISEASE
     Route: 055
     Dates: start: 20000101
  2. COMBIVENT [Suspect]
     Indication: LUNG DISORDER
  3. ISOSORBIDE MONO [Concomitant]
     Indication: PROMOTION OF PERIPHERAL CIRCULATION
  4. MAXALT [Concomitant]
     Indication: HYPERTENSION
  5. PREDNISONE [Concomitant]
     Indication: LUNG DISORDER
     Dosage: 10MG
     Route: 048
  6. MAXZIDE [Concomitant]
     Indication: HYPERTENSION
     Dosage: 25MG
  7. DUONEB [Concomitant]
  8. FORADIL [Concomitant]

REACTIONS (1)
  - BREAST CANCER [None]
